FAERS Safety Report 25986182 (Version 5)
Quarter: 2025Q4

REPORT INFORMATION
  Report Type: Report from Study
  Country: CN (occurrence: CN)
  Receive Date: 20251031
  Receipt Date: 20251222
  Transmission Date: 20260118
  Serious: Yes (Hospitalization)
  Sender: SERVIER
  Company Number: CN-SERVIER-S25015540

PATIENT

DRUGS (2)
  1. VORASIDENIB [Suspect]
     Active Substance: VORASIDENIB
     Indication: Astrocytoma
     Dosage: 40 MG
     Route: 048
     Dates: start: 20250912
  2. LEVETIRACETAM [Concomitant]
     Active Substance: LEVETIRACETAM
     Indication: Epilepsy
     Dosage: 1 G
     Route: 048
     Dates: start: 20251003

REACTIONS (18)
  - Iron deficiency anaemia [Recovered/Resolved]
  - Alanine aminotransferase increased [Recovered/Resolved]
  - Aspartate aminotransferase increased [Recovered/Resolved]
  - AST/ALT ratio abnormal [Recovered/Resolved]
  - Plateletcrit increased [Unknown]
  - Blood albumin decreased [Unknown]
  - Albumin globulin ratio decreased [Unknown]
  - Prealbumin decreased [Unknown]
  - Prothrombin level increased [Unknown]
  - Blood phosphorus abnormal [Unknown]
  - Blood lactic acid abnormal [Unknown]
  - Thyroid cyst [Unknown]
  - Pulmonary mass [Unknown]
  - Pelvic fluid collection [Unknown]
  - Cervical cyst [Unknown]
  - Asthenia [Unknown]
  - Upper respiratory tract infection [Recovered/Resolved]
  - Cough [Not Recovered/Not Resolved]

NARRATIVE: CASE EVENT DATE: 20250924
